FAERS Safety Report 15154637 (Version 1)
Quarter: 2018Q3

REPORT INFORMATION
  Report Type: Spontaneous
  Country: US (occurrence: US)
  Receive Date: 20180717
  Receipt Date: 20180717
  Transmission Date: 20181010
  Serious: Yes (Other)
  Sender: FDA-Public Use
  Company Number: US-DSJP-DSU-2017-145885

PATIENT

DRUGS (2)
  1. BENICAR [Suspect]
     Active Substance: OLMESARTAN MEDOXOMIL
     Indication: PRODUCT USED FOR UNKNOWN INDICATION
     Dosage: 20 MG, UNK
  2. BENICAR [Suspect]
     Active Substance: OLMESARTAN MEDOXOMIL
     Dosage: 40 MG,QD
     Dates: end: 20130628

REACTIONS (9)
  - Sprue-like enteropathy [Recovering/Resolving]
  - Diverticulum intestinal [Unknown]
  - Hiatus hernia [Unknown]
  - Cholelithiasis [Recovered/Resolved]
  - Acquired oesophageal web [Unknown]
  - Polyp [Unknown]
  - Gastrooesophageal reflux disease [Recovered/Resolved]
  - Haemorrhoids [Recovering/Resolving]
  - Coeliac disease [Recovering/Resolving]

NARRATIVE: CASE EVENT DATE: 20120229
